FAERS Safety Report 14740937 (Version 1)
Quarter: 2018Q2

REPORT INFORMATION
  Report Type: Spontaneous
  Country: FR (occurrence: FR)
  Receive Date: 20180410
  Receipt Date: 20180410
  Transmission Date: 20180711
  Serious: Yes (Life-Threatening)
  Sender: FDA-Public Use
  Company Number: FR-HERITAGE PHARMACEUTICALS-2018HTG00069

PATIENT
  Sex: Female

DRUGS (1)
  1. DESIPRAMINE HYDROCHLORIDE. [Suspect]
     Active Substance: DESIPRAMINE HYDROCHLORIDE
     Indication: RETT SYNDROME
     Dosage: BETWEEN 25 MG TO 100 MG
     Route: 065

REACTIONS (1)
  - Status epilepticus [Unknown]
